FAERS Safety Report 14382258 (Version 8)
Quarter: 2021Q2

REPORT INFORMATION
  Report Type: Report from Study
  Country: CA (occurrence: CA)
  Receive Date: 20180112
  Receipt Date: 20210622
  Transmission Date: 20210716
  Serious: Yes (Hospitalization, Other)
  Sender: FDA-Public Use
  Company Number: PHHY2013CA073163

PATIENT
  Age: 72 Year
  Sex: Male

DRUGS (8)
  1. SANDOSTATIN [Suspect]
     Active Substance: OCTREOTIDE ACETATE
  2. SANDOSTATIN LAR DEPOT [Suspect]
     Active Substance: OCTREOTIDE ACETATE
     Indication: NEUROENDOCRINE CARCINOMA
     Dosage: 30 MG, EVERY 4 WEEKS
     Route: 030
     Dates: start: 20130626
  3. SANDOSTATIN [Suspect]
     Active Substance: OCTREOTIDE ACETATE
  4. SANDOSTATIN [Suspect]
     Active Substance: OCTREOTIDE ACETATE
     Indication: NEUROENDOCRINE CARCINOMA
     Dosage: ONCE/SINGLE (TEST DOSE)
     Route: 058
     Dates: start: 20130614, end: 20130614
  5. SANDOSTATIN LAR DEPOT [Suspect]
     Active Substance: OCTREOTIDE ACETATE
     Dosage: 20 MG, QMO, EVERY 4 WEEKS
     Route: 030
  6. PANTOLOC [Concomitant]
     Active Substance: PANTOPRAZOLE SODIUM
     Indication: PRODUCT USED FOR UNKNOWN INDICATION
     Dosage: 40 MG, QD
     Route: 048
     Dates: start: 2019
  7. SANDOSTATIN LAR DEPOT [Suspect]
     Active Substance: OCTREOTIDE ACETATE
     Dosage: 30 MG, EVERY 4 WEEKS
     Route: 030
  8. LASIX [Concomitant]
     Active Substance: FUROSEMIDE
     Indication: PRODUCT USED FOR UNKNOWN INDICATION
     Dosage: 40 MG, PRN
     Route: 065

REACTIONS (17)
  - Swelling [Unknown]
  - Faeces discoloured [Unknown]
  - Rash [Unknown]
  - Malignant neoplasm progression [Unknown]
  - Blood calcium increased [Unknown]
  - Diarrhoea [Recovered/Resolved]
  - Blood pressure decreased [Unknown]
  - Blood pressure systolic increased [Unknown]
  - Neuroendocrine tumour [Unknown]
  - Oedema peripheral [Unknown]
  - Injection site mass [Recovered/Resolved]
  - Carcinoid crisis [Unknown]
  - Anaphylactic shock [Unknown]
  - Second primary malignancy [Unknown]
  - Renal cancer [Unknown]
  - Blood pressure increased [Unknown]
  - Protein urine present [Unknown]

NARRATIVE: CASE EVENT DATE: 20130629
